FAERS Safety Report 5097291-3 (Version None)
Quarter: 2006Q3

REPORT INFORMATION
  Report Type: 
  Country: None (occurrence: None)
  Receive Date: 20060901
  Receipt Date: 20060823
  Transmission Date: 20061208
  Serious: Yes (Life-Threatening)
  Sender: FDA-Public Use
  Company Number: 218058

PATIENT
  Age: 67 Year
  Sex: Female
  Weight: 65 kg

DRUGS (7)
  1. B0032 [Suspect]
     Indication: CHRONIC LYMPHOCYTIC LEUKAEMIA
     Dosage: 900 MG, Q28D, INTRAVENOUS
     Route: 042
     Dates: start: 20050330, end: 20050720
  2. CYCLOPHOSPHAMIDE [Suspect]
     Indication: CHRONIC LYMPHOCYTIC LEUKAEMIA
     Dosage: 450 MG, Q28D, INTRAVENOUS
     Route: 042
     Dates: start: 20050331, end: 20050722
  3. FLUDARABINE PHOSPHATE [Suspect]
     Indication: CHRONIC LYMPHOCYTIC LEUKAEMIA
     Dosage: 45 MG, Q28D, INTRAVENOUS
     Route: 042
     Dates: start: 20050331, end: 20050722
  4. SULFAMETHOXAZOLE + TRIMETHOPRIM [Concomitant]
  5. ACYCLOVIR SODIUM [Concomitant]
  6. CIPROFLAXACIN [Concomitant]
  7. VANCOMYCIN HYDROCHLORIDE [Concomitant]

REACTIONS (3)
  - BONE MARROW FAILURE [None]
  - HEPATITIS B [None]
  - PANCYTOPENIA [None]
